FAERS Safety Report 14087488 (Version 2)
Quarter: 2017Q4

REPORT INFORMATION
  Report Type: Spontaneous
  Country: US (occurrence: US)
  Receive Date: 20171013
  Receipt Date: 20171115
  Transmission Date: 20180321
  Serious: No
  Sender: FDA-Public Use
  Company Number: PHEH2017US032590

PATIENT
  Sex: Male
  Weight: 77.11 kg

DRUGS (1)
  1. ALPRAZOLAM TABLETS USP [Suspect]
     Active Substance: ALPRAZOLAM
     Indication: POST-TRAUMATIC STRESS DISORDER
     Dosage: 3-4 TIMES A DAY AS NEEDED PRN
     Route: 065
     Dates: start: 2003

REACTIONS (5)
  - Abdominal discomfort [Not Recovered/Not Resolved]
  - Product quality issue [Unknown]
  - Anxiety [Not Recovered/Not Resolved]
  - Hypersomnia [Not Recovered/Not Resolved]
  - Visual impairment [Not Recovered/Not Resolved]
